FAERS Safety Report 5258802-8 (Version None)
Quarter: 2007Q1

REPORT INFORMATION
  Report Type: 
  Country: None (occurrence: None)
  Receive Date: 20070306
  Receipt Date: 20070306
  Transmission Date: 20070707
  Serious: Yes (Life-Threatening, Hospitalization)
  Sender: FDA-Public Use
  Company Number: None

PATIENT
  Age: 56 Year
  Sex: Male
  Weight: 147 kg

DRUGS (3)
  1. CEFTRIAXONE [Suspect]
     Indication: DEVICE RELATED INFECTION
     Dosage: 2 GM Q24 IV BOLUS
     Route: 040
     Dates: start: 20070223, end: 20070302
  2. CEFTRIAXONE [Suspect]
     Indication: STAPHYLOCOCCAL INFECTION
     Dosage: 2 GM Q24 IV BOLUS
     Route: 040
     Dates: start: 20070223, end: 20070302
  3. RIFAMPIN [Suspect]
     Dosage: 600 MG DAILY PO
     Route: 048
     Dates: start: 20070222, end: 20070303

REACTIONS (6)
  - CONFUSIONAL STATE [None]
  - HAEMOLYTIC ANAEMIA [None]
  - HEART RATE INCREASED [None]
  - HYPOTENSION [None]
  - RESPIRATORY RATE INCREASED [None]
  - SEPTIC SHOCK [None]
